FAERS Safety Report 13901085 (Version 1)
Quarter: 2017Q3

REPORT INFORMATION
  Report Type: Spontaneous
  Country: US (occurrence: None)
  Receive Date: 20170819
  Receipt Date: 20170819
  Transmission Date: 20171127
  Serious: Yes (Hospitalization)
  Sender: FDA-Public Use
  Company Number: None

PATIENT
  Age: 75 Year
  Sex: Male
  Weight: 69 kg

DRUGS (1)
  1. REGORAFENIB 160MG-120MG [Suspect]
     Active Substance: REGORAFENIB
     Indication: COLORECTAL CANCER METASTATIC
     Dosage: FREQUENCY - DAILY FOR 21 DAYS
     Route: 048
     Dates: start: 20170422, end: 20170612

REACTIONS (5)
  - Therapy cessation [None]
  - Dyspnoea exertional [None]
  - Disease progression [None]
  - Metastases to lung [None]
  - Hypoxia [None]

NARRATIVE: CASE EVENT DATE: 20170613
